FAERS Safety Report 5774618-8 (Version None)
Quarter: 2008Q2

REPORT INFORMATION
  Report Type: 
  Country: None (occurrence: None)
  Receive Date: 20080616
  Receipt Date: 20080613
  Transmission Date: 20081010
  Serious: Yes (Hospitalization)
  Sender: FDA-Public Use
  Company Number: GR-MERCK-0806GRC00004

PATIENT
  Age: 78 Year
  Sex: Male

DRUGS (7)
  1. JANUVIA [Suspect]
     Indication: TYPE 2 DIABETES MELLITUS
     Route: 048
     Dates: start: 20080522, end: 20080607
  2. CLOPIDOGREL BISULFATE [Concomitant]
     Route: 048
  3. CAPTOPRIL [Concomitant]
     Route: 048
  4. METOPROLOL TARTRATE [Concomitant]
     Route: 048
  5. ATORVASTATIN CALCIUM [Concomitant]
     Route: 048
  6. GLIMEPIRIDE [Concomitant]
     Route: 048
  7. METFORMIN HYDROCHLORIDE [Concomitant]
     Route: 048

REACTIONS (1)
  - ARTHRALGIA [None]
